FAERS Safety Report 9834398 (Version 1)
Quarter: 2014Q1

REPORT INFORMATION
  Report Type: Spontaneous
  Country: US (occurrence: US)
  Receive Date: 20140122
  Receipt Date: 20140122
  Transmission Date: 20141002
  Serious: Yes (Hospitalization, Disabling)
  Sender: FDA-Public Use
  Company Number: US-GE HEALTHCARE MEDICAL DIAGNOSTICS-OSCN-PR-1312S-0152

PATIENT
  Sex: Female

DRUGS (4)
  1. OMNISCAN [Suspect]
     Indication: PERIPHERAL ARTERY THROMBOSIS
     Dates: start: 20030707, end: 20030707
  2. OMNISCAN [Suspect]
     Indication: GASTROINTESTINAL DISORDER
     Dates: start: 20050204, end: 20050204
  3. MAGNEVIST [Suspect]
     Indication: PERIPHERAL ARTERY THROMBOSIS
     Route: 042
     Dates: start: 20030707, end: 20030707
  4. MAGNEVIST [Suspect]
     Indication: GASTROINTESTINAL DISORDER
     Route: 042
     Dates: start: 20050204, end: 20050204

REACTIONS (4)
  - Nephrogenic systemic fibrosis [Not Recovered/Not Resolved]
  - Skin tightness [Not Recovered/Not Resolved]
  - Skin induration [Not Recovered/Not Resolved]
  - Limb immobilisation [Not Recovered/Not Resolved]
